FAERS Safety Report 7176988-5 (Version None)
Quarter: 2010Q4

REPORT INFORMATION
  Report Type: 
  Country: None (occurrence: None)
  Receive Date: 20101220
  Receipt Date: 20101213
  Transmission Date: 20110411
  Serious: Yes (Other)
  Sender: FDA-Public Use
  Company Number: US-JNJFOC-20101205293

PATIENT
  Sex: Female
  Weight: 58.97 kg

DRUGS (5)
  1. DURAGESIC-50 [Suspect]
     Indication: PAIN
     Route: 062
  2. DURAGESIC-50 [Suspect]
     Route: 062
  3. LIDODERM [Concomitant]
     Indication: PAIN
     Route: 062
  4. LANTUS [Concomitant]
     Indication: DIABETES MELLITUS
     Route: 058
  5. LORTAB [Concomitant]
     Indication: PAIN
     Route: 048

REACTIONS (11)
  - BLINDNESS [None]
  - DIABETES MELLITUS [None]
  - DRUG ADMINISTERED AT INAPPROPRIATE SITE [None]
  - HAEMOGLOBIN ABNORMAL [None]
  - HYPERHIDROSIS [None]
  - MUSCLE SPASMS [None]
  - NEURALGIA [None]
  - PRODUCT ADHESION ISSUE [None]
  - SWELLING [None]
  - WEIGHT FLUCTUATION [None]
  - WRONG TECHNIQUE IN DRUG USAGE PROCESS [None]
